FAERS Safety Report 5165542-2 (Version None)
Quarter: 2006Q4

REPORT INFORMATION
  Report Type: 
  Country: None (occurrence: None)
  Receive Date: 20061206
  Receipt Date: 20060901
  Transmission Date: 20070319
  Serious: Yes (Life-Threatening, Hospitalization, Disabling)
  Sender: FDA-Public Use
  Company Number: AU-ROCHE-461806

PATIENT
  Age: 42 Year
  Sex: Male
  Weight: 80 kg

DRUGS (2)
  1. PEGASYS [Suspect]
     Indication: HEPATITIS C
     Route: 058
     Dates: start: 20060424, end: 20060726
  2. PREDNISOLONE [Concomitant]

REACTIONS (9)
  - ANGIONEUROTIC OEDEMA [None]
  - CARDIAC FAILURE [None]
  - DEEP VEIN THROMBOSIS [None]
  - LUPUS NEPHRITIS [None]
  - MOUTH ULCERATION [None]
  - POLYARTHRITIS [None]
  - RASH [None]
  - STREPTOCOCCAL SEPSIS [None]
  - SYSTEMIC LUPUS ERYTHEMATOSUS [None]
